FAERS Safety Report 8228801 (Version 8)
Quarter: 2014Q2

REPORT INFORMATION
  Report Type: Report from Study
  Country: AU (occurrence: AU)
  Receive Date: 20111104
  Receipt Date: 20140423
  Transmission Date: 20141212
  Serious: Yes (Life-Threatening, Hospitalization)
  Sender: FDA-Public Use
  Company Number: PHHO2011AU18142

PATIENT
  Age: 71 Year
  Sex: Male
  Weight: 67 kg

DRUGS (10)
  1. AMN107 [Suspect]
     Indication: CHRONIC MYELOID LEUKAEMIA
     Dosage: 400 MG, BID
     Route: 048
     Dates: start: 20090713, end: 20130118
  2. AMN107 [Suspect]
     Dosage: 400 MG, BID
     Route: 048
  3. ATORVASTATIN [Concomitant]
     Indication: HYPERTENSION
     Dosage: 40 MG, QD
     Route: 048
  4. AMLODIPINE [Concomitant]
     Indication: HYPERTENSION
     Dosage: 10 MG, QD
     Route: 048
  5. CALTRATE [Concomitant]
     Indication: MINERAL SUPPLEMENTATION
     Dosage: 1200 MG, QD
     Route: 048
  6. CLOPIDOGREL [Concomitant]
     Dosage: 75 MG, QD (MANE)
     Route: 048
  7. IRBESARTAN [Concomitant]
  8. THIAMINE [Concomitant]
     Dosage: 100 MG, TAS
     Route: 048
  9. PANTOPRAZOLE [Concomitant]
     Dosage: 40 MG, QD (MANE)
     Route: 048
  10. TELMISARTAN [Concomitant]
     Indication: HYPERTENSION
     Dosage: 80 MG, QD
     Route: 048

REACTIONS (2)
  - Syncope [Unknown]
  - Cerebral ischaemia [Recovered/Resolved with Sequelae]
